FAERS Safety Report 24370640 (Version 2)
Quarter: 2024Q4

REPORT INFORMATION
  Report Type: Report from Study
  Country: MX (occurrence: MX)
  Receive Date: 20240927
  Receipt Date: 20241004
  Transmission Date: 20250115
  Serious: Yes (Hospitalization, Other)
  Sender: JOHNSON AND JOHNSON
  Company Number: MX-JNJFOC-20240961018

PATIENT
  Age: 67 Year
  Sex: Female
  Weight: 77 kg

DRUGS (5)
  1. STELARA [Suspect]
     Active Substance: USTEKINUMAB
     Indication: Colitis ulcerative
     Route: 040
     Dates: start: 20240520
  2. STELARA [Suspect]
     Active Substance: USTEKINUMAB
     Indication: Colitis ulcerative
     Route: 058
     Dates: start: 20240627
  3. STELARA [Suspect]
     Active Substance: USTEKINUMAB
  4. HYDROCORTISONE [Concomitant]
     Active Substance: HYDROCORTISONE
  5. ANTIMONY [Concomitant]
     Active Substance: ANTIMONY
     Indication: Product used for unknown indication

REACTIONS (7)
  - Amoebic dysentery [Recovering/Resolving]
  - Escherichia infection [Recovering/Resolving]
  - Anaemia [Recovering/Resolving]
  - Clostridium difficile infection [Recovering/Resolving]
  - Colitis ulcerative [Recovering/Resolving]
  - Off label use [Unknown]
  - Drug ineffective [Unknown]

NARRATIVE: CASE EVENT DATE: 20240101
